FAERS Safety Report 16925844 (Version 3)
Quarter: 2019Q4

REPORT INFORMATION
  Report Type: Spontaneous
  Country: US (occurrence: US)
  Receive Date: 20191016
  Receipt Date: 20191212
  Transmission Date: 20200122
  Serious: Yes (Hospitalization, Other)
  Sender: FDA-Public Use
  Company Number: US-ASTRAZENECA-2019SF45388

PATIENT
  Sex: Female

DRUGS (7)
  1. SPIRIVA [Concomitant]
     Active Substance: TIOTROPIUM BROMIDE MONOHYDRATE
     Dosage: ONCE A DAY
  2. TUDORZA [Suspect]
     Active Substance: ACLIDINIUM BROMIDE
     Indication: CHRONIC OBSTRUCTIVE PULMONARY DISEASE
     Route: 055
  3. VENTOLIN RESCUE INHALER [Concomitant]
  4. BEVESPI AEROSPHERE [Suspect]
     Active Substance: FORMOTEROL FUMARATE\GLYCOPYRROLATE
     Indication: CHRONIC OBSTRUCTIVE PULMONARY DISEASE
     Dosage: UNKNOWN, TWO TIMES A DAY
     Route: 055
     Dates: start: 201708
  5. SYMBICORT [Suspect]
     Active Substance: BUDESONIDE\FORMOTEROL FUMARATE DIHYDRATE
     Dosage: 160/4.5 UG, TWO INHALATIONS TWICE DAILY
     Route: 055
  6. DIURETIC [Concomitant]
     Active Substance: UNSPECIFIED INGREDIENT
     Dosage: 25 MGS ONCE A DAY
  7. HYDROCHLOROTHIAZIDE. [Concomitant]
     Active Substance: HYDROCHLOROTHIAZIDE
     Dosage: 25 MGS ONCE A DAY

REACTIONS (10)
  - Incorrect dose administered by device [Unknown]
  - Intentional device misuse [Not Recovered/Not Resolved]
  - Cataract [Unknown]
  - Constipation [Unknown]
  - Myocardial infarction [Unknown]
  - Dyspnoea [Unknown]
  - Gait disturbance [Unknown]
  - Cerebrovascular accident [Unknown]
  - Device issue [Unknown]
  - Macular degeneration [Unknown]
